FAERS Safety Report 14188089 (Version 1)
Quarter: 2017Q4

REPORT INFORMATION
  Report Type: Spontaneous
  Country: US (occurrence: US)
  Receive Date: 20171114
  Receipt Date: 20171114
  Transmission Date: 20180321
  Serious: Yes (Other)
  Sender: FDA-Public Use
  Company Number: US-SA-2017SA221966

PATIENT
  Sex: Male

DRUGS (3)
  1. METFORMIN [Concomitant]
     Active Substance: METFORMIN HYDROCHLORIDE
  2. LANTUS [Suspect]
     Active Substance: INSULIN GLARGINE
     Route: 051
  3. LANTUS [Suspect]
     Active Substance: INSULIN GLARGINE
     Route: 051

REACTIONS (3)
  - Cerebrovascular accident [Unknown]
  - Hypertension [Unknown]
  - Blood glucose increased [Unknown]
